FAERS Safety Report 26086908 (Version 1)
Quarter: 2025Q4

REPORT INFORMATION
  Report Type: Report from Study
  Country: US (occurrence: US)
  Receive Date: 20251125
  Receipt Date: 20251125
  Transmission Date: 20260119
  Serious: Yes (Other)
  Sender: ABBVIE
  Company Number: US-ABBVIE-6557421

PATIENT
  Age: 52 Year
  Sex: Male

DRUGS (3)
  1. ASACOL [Suspect]
     Active Substance: MESALAMINE
     Indication: Product used for unknown indication
     Route: 048
     Dates: start: 20100501, end: 2018
  2. ASACOL [Suspect]
     Active Substance: MESALAMINE
     Indication: Product used for unknown indication
     Route: 065
  3. SELENIUM [Suspect]
     Active Substance: SELENIUM
     Indication: Colitis
     Route: 065
     Dates: start: 2021

REACTIONS (3)
  - Myocardial infarction [Recovered/Resolved]
  - Alopecia [Recovered/Resolved]
  - Hyperlipidaemia [Unknown]

NARRATIVE: CASE EVENT DATE: 20100615
